FAERS Safety Report 9474074 (Version 1)
Quarter: 2013Q3

REPORT INFORMATION
  Report Type: Spontaneous
  Country: US (occurrence: US)
  Receive Date: 20130823
  Receipt Date: 20130823
  Transmission Date: 20140515
  Serious: Yes (Other)
  Sender: FDA-Public Use
  Company Number: US-SANOFI-AVENTIS-2013SA083518

PATIENT
  Sex: Female

DRUGS (2)
  1. APIDRA [Suspect]
     Route: 065
  2. LANTUS [Suspect]
     Route: 065

REACTIONS (3)
  - Ankle fracture [Recovering/Resolving]
  - Wrist fracture [Recovering/Resolving]
  - Fall [Recovering/Resolving]
